FAERS Safety Report 8392369-0 (Version None)
Quarter: 2012Q2

REPORT INFORMATION
  Report Type: 
  Country: None (occurrence: None)
  Receive Date: 20120529
  Receipt Date: 20120522
  Transmission Date: 20120825
  Serious: Yes (Hospitalization, Other)
  Sender: FDA-Public Use
  Company Number: US-ACTELION-A-US2011-48305

PATIENT

DRUGS (5)
  1. TRACLEER [Suspect]
     Indication: PULMONARY ARTERIAL HYPERTENSION
     Dosage: UNK
     Route: 048
     Dates: start: 20090311
  2. CALCIUM CHANNEL BLOCKERS [Concomitant]
  3. OXYGEN [Concomitant]
  4. ADCIRCA [Concomitant]
  5. COUMADIN [Concomitant]

REACTIONS (11)
  - CARDIAC FIBRILLATION [None]
  - RENAL FAILURE [None]
  - WEIGHT DECREASED [None]
  - NASOPHARYNGITIS [None]
  - HAEMORRHAGE [None]
  - ANAEMIA [None]
  - DYSPNOEA [None]
  - PULMONARY OEDEMA [None]
  - URINARY TRACT INFECTION [None]
  - PNEUMONIA [None]
  - PYREXIA [None]
